FAERS Safety Report 6573510-9 (Version None)
Quarter: 2010Q1

REPORT INFORMATION
  Report Type: 
  Country: None (occurrence: None)
  Receive Date: 20100208
  Receipt Date: 20100204
  Transmission Date: 20100710
  Serious: Yes (Life-Threatening)
  Sender: FDA-Public Use
  Company Number: JP-ASTRAZENECA-2010SE02075

PATIENT
  Age: 76 Year
  Sex: Male
  Weight: 38 kg

DRUGS (5)
  1. IRESSA [Suspect]
     Indication: LUNG ADENOCARCINOMA
     Route: 048
     Dates: start: 20090404, end: 20091217
  2. LOXONIN [Concomitant]
     Indication: PAIN
     Route: 048
     Dates: start: 20090227
  3. OXYCONTIN [Concomitant]
     Indication: PAIN
     Route: 048
     Dates: start: 20090304
  4. GASTER D [Concomitant]
     Indication: GASTRIC ULCER
     Route: 048
     Dates: start: 20090304
  5. TAKEPRON [Concomitant]
     Indication: GASTRIC ULCER
     Route: 048
     Dates: start: 20090716

REACTIONS (1)
  - INTERSTITIAL LUNG DISEASE [None]
